FAERS Safety Report 19242531 (Version 1)
Quarter: 2021Q2

REPORT INFORMATION
  Report Type: Spontaneous
  Country: US (occurrence: US)
  Receive Date: 20210511
  Receipt Date: 20210511
  Transmission Date: 20210717
  Serious: Yes (Death)
  Sender: FDA-Public Use
  Company Number: US-PRIMUS PHARMACEUTICALS-2021PRI00183

PATIENT
  Age: 76 Year
  Sex: Female

DRUGS (1)
  1. VASCULERA [Suspect]
     Active Substance: MEDICAL FOOD

REACTIONS (1)
  - Death [Fatal]

NARRATIVE: CASE EVENT DATE: 202102
